FAERS Safety Report 16599332 (Version 3)
Quarter: 2019Q3

REPORT INFORMATION
  Report Type: Spontaneous
  Country: JP (occurrence: JP)
  Receive Date: 20190719
  Receipt Date: 20190925
  Transmission Date: 20191004
  Serious: Yes (Hospitalization, Other)
  Sender: FDA-Public Use
  Company Number: JP-BRISTOL-MYERS SQUIBB COMPANY-BMS-2019-065145

PATIENT
  Age: 71 Year
  Sex: Male

DRUGS (2)
  1. YERVOY [Suspect]
     Active Substance: IPILIMUMAB
     Indication: METASTATIC RENAL CELL CARCINOMA
     Dosage: UNK
     Route: 041
     Dates: start: 20190606
  2. OPDIVO [Suspect]
     Active Substance: NIVOLUMAB
     Indication: METASTATIC RENAL CELL CARCINOMA
     Dosage: UNK
     Route: 041
     Dates: start: 20190606

REACTIONS (9)
  - Myocarditis [Unknown]
  - Encephalitis [Unknown]
  - Thyroiditis [Unknown]
  - Myositis [Unknown]
  - Nausea [Recovered/Resolved]
  - Hyperthyroidism [Not Recovered/Not Resolved]
  - Myasthenia gravis [Unknown]
  - Blood creatine phosphokinase MB increased [Unknown]
  - Decreased appetite [Recovered/Resolved]

NARRATIVE: CASE EVENT DATE: 20190627
